FAERS Safety Report 19836364 (Version 2)
Quarter: 2021Q4

REPORT INFORMATION
  Report Type: Spontaneous
  Country: US (occurrence: US)
  Receive Date: 20210916
  Receipt Date: 20211124
  Transmission Date: 20220303
  Serious: No
  Sender: FDA-Public Use
  Company Number: US-BRISTOL-MYERS SQUIBB COMPANY-BMS-2021-093125

PATIENT
  Sex: Female

DRUGS (1)
  1. ELIQUIS [Suspect]
     Active Substance: APIXABAN
     Indication: Product used for unknown indication
     Dosage: UNK
     Route: 065

REACTIONS (8)
  - Muscular weakness [Recovering/Resolving]
  - Paraesthesia [Recovering/Resolving]
  - Myalgia [Recovering/Resolving]
  - Palpitations [Recovering/Resolving]
  - Lung disorder [Recovering/Resolving]
  - Connective tissue disorder [Recovering/Resolving]
  - Mobility decreased [Recovering/Resolving]
  - Bladder spasm [Recovering/Resolving]
